FAERS Safety Report 24173528 (Version 1)
Quarter: 2024Q3

REPORT INFORMATION
  Report Type: Spontaneous
  Country: US (occurrence: US)
  Receive Date: 20240805
  Receipt Date: 20240805
  Transmission Date: 20241016
  Serious: Yes (Other)
  Sender: Kilitch Healthcare
  Company Number: US-KHC-000058

PATIENT
  Sex: Male

DRUGS (1)
  1. EXTREME RELIEF LUBRICANT [Suspect]
     Active Substance: POLYETHYLENE GLYCOL 400\PROPYLENE GLYCOL
     Indication: Product used for unknown indication
     Route: 065

REACTIONS (2)
  - Ulcerative keratitis [Unknown]
  - Visual impairment [Unknown]
